FAERS Safety Report 6958199-9 (Version None)
Quarter: 2010Q3

REPORT INFORMATION
  Report Type: 
  Country: None (occurrence: None)
  Receive Date: 20100831
  Receipt Date: 20100824
  Transmission Date: 20110219
  Serious: Yes (Other)
  Sender: FDA-Public Use
  Company Number: US-CEPHALON-2010004511

PATIENT
  Age: 43 Year
  Sex: Female
  Weight: 124 kg

DRUGS (26)
  1. PROVIGIL [Suspect]
     Indication: SLEEP APNOEA SYNDROME
     Route: 048
  2. PROVIGIL [Suspect]
     Indication: FATIGUE
     Route: 048
  3. LISINOPRIL [Suspect]
     Indication: BLOOD PRESSURE MANAGEMENT
     Route: 048
     Dates: start: 20060101
  4. LYRICA [Suspect]
     Indication: FIBROMYALGIA
     Route: 048
     Dates: start: 20070101
  5. LYRICA [Suspect]
     Dates: start: 20070101
  6. FLUTICASONE PROPIONATE [Suspect]
     Indication: NASAL SEPTUM DEVIATION
     Dates: start: 20100501
  7. SIMVASTATIN [Suspect]
     Indication: BLOOD CHOLESTEROL
     Route: 048
     Dates: start: 20070101
  8. MELOXICAM [Suspect]
     Indication: PAIN
     Route: 048
  9. CETIRIZINE HCL [Suspect]
     Indication: HYPERSENSITIVITY
     Route: 048
  10. ASPIRIN [Suspect]
     Indication: CARDIAC DISORDER
     Route: 048
  11. LEVOTHYROXINE SODIUM [Suspect]
     Indication: THYROID DISORDER
     Route: 048
     Dates: start: 20060101
  12. TEGRETOL [Suspect]
     Indication: AFFECTIVE DISORDER
     Route: 048
  13. TEGRETOL [Suspect]
     Indication: PERSONALITY DISORDER
  14. PROPRANOLOL [Suspect]
     Indication: BLOOD PRESSURE MANAGEMENT
     Route: 048
     Dates: start: 20060101
  15. METHOCARBAMOL [Suspect]
     Indication: PAIN
     Route: 048
  16. METHOCARBAMOL [Suspect]
  17. BACLOFEN [Suspect]
     Indication: RESTLESS LEGS SYNDROME
     Route: 048
  18. METHADOSE [Suspect]
     Indication: PAIN
     Route: 048
  19. CYMBALTA [Suspect]
     Indication: DEPRESSION
     Route: 048
     Dates: start: 19970101
  20. OMEPRAZOLE [Suspect]
     Indication: GASTROOESOPHAGEAL REFLUX DISEASE
     Route: 048
  21. LIDODERM [Suspect]
     Indication: MYALGIA
     Route: 062
  22. INSULIN DETEMIR [Suspect]
     Indication: DIABETES MELLITUS
     Dates: start: 20080101
  23. MIRALAX [Suspect]
     Indication: CONSTIPATION
  24. FISH OIL [Suspect]
  25. VITAMIN E [Suspect]
  26. MULTI-VITAMIN [Suspect]

REACTIONS (2)
  - CONVULSION [None]
  - FIBROMYALGIA [None]
